FAERS Safety Report 10222441 (Version 5)
Quarter: 2015Q2

REPORT INFORMATION
  Report Type: Spontaneous
  Country: US (occurrence: US)
  Receive Date: 20140606
  Receipt Date: 20150518
  Transmission Date: 20150821
  Serious: Yes (Hospitalization, Other)
  Sender: FDA-Public Use
  Company Number: US-PFIZER INC-2014156459

PATIENT
  Age: 47 Year
  Sex: Female
  Weight: 69 kg

DRUGS (3)
  1. JENTADUETO [Concomitant]
     Active Substance: LINAGLIPTIN\METFORMIN HYDROCHLORIDE
     Indication: DIABETES MELLITUS
     Dosage: LINAGLIPTIN 2.5MG/METFORMIN 1000 MG, 2X/DAY
  2. LYRICA [Suspect]
     Active Substance: PREGABALIN
     Indication: DIABETIC NEUROPATHY
     Dosage: 200 MG, 3X/DAY
  3. TRAMADOL [Concomitant]
     Active Substance: TRAMADOL

REACTIONS (7)
  - Thermal burn [Unknown]
  - Lower limb fracture [Recovered/Resolved]
  - Wound infection [Not Recovered/Not Resolved]
  - Arthropathy [Unknown]
  - Lower limb fracture [Recovered/Resolved]
  - Hypothyroidism [Unknown]
  - Vomiting [Recovered/Resolved]

NARRATIVE: CASE EVENT DATE: 2014
